FAERS Safety Report 6994235-1 (Version None)
Quarter: 2010Q3

REPORT INFORMATION
  Report Type: 
  Country: None (occurrence: None)
  Receive Date: 20100917
  Receipt Date: 20100217
  Transmission Date: 20110219
  Serious: Yes (Hospitalization, Other)
  Sender: FDA-Public Use
  Company Number: US-ASTRAZENECA-2009UW20959

PATIENT
  Age: 43 Year
  Sex: Female
  Weight: 64.9 kg

DRUGS (15)
  1. SEROQUEL [Suspect]
     Route: 048
     Dates: start: 20050623
  2. RISPERDAL [Concomitant]
     Dates: start: 20050427
  3. ZOLOFT [Concomitant]
     Dates: start: 20050427
  4. BENZTROPINE MESYLATE [Concomitant]
     Dates: start: 20050427
  5. DOXEPIN HCL [Concomitant]
     Dates: start: 20050427
  6. DIPHENHYDRAMINE HCL [Concomitant]
     Dates: start: 20050428
  7. VALTREX [Concomitant]
     Dates: start: 20050504
  8. HYDROCODONE [Concomitant]
     Dosage: 10/650 TAB
     Dates: start: 20050525
  9. ATENOLOL [Concomitant]
     Dates: start: 20050719
  10. NEXIUM [Concomitant]
     Dates: start: 20050719
  11. NORVASC [Concomitant]
     Dates: start: 20050719
  12. CEPHADYN [Concomitant]
     Dosage: 50/650 TAB
     Dates: start: 20050504
  13. LORTAB [Concomitant]
     Dosage: 5/500 TABLET
     Dates: start: 20080912
  14. ATIVAN [Concomitant]
     Dates: start: 20090105
  15. SOMA [Concomitant]

REACTIONS (3)
  - DIABETES MELLITUS [None]
  - KETOACIDOSIS [None]
  - PANCREATITIS [None]
